FAERS Safety Report 4823664-7 (Version None)
Quarter: 2005Q4

REPORT INFORMATION
  Report Type: 
  Country: None (occurrence: None)
  Receive Date: 20051109
  Receipt Date: 20051102
  Transmission Date: 20060501
  Serious: Yes (Other)
  Sender: FDA-Public Use
  Company Number: JP-JPN-A20052659

PATIENT
  Sex: Male

DRUGS (2)
  1. PAXIL [Suspect]
     Route: 048
  2. ALCOHOL [Suspect]

REACTIONS (3)
  - ALCOHOL INTERACTION [None]
  - ANGINA PECTORIS [None]
  - DRUG INTERACTION [None]
